FAERS Safety Report 5764724-6 (Version None)
Quarter: 2008Q2

REPORT INFORMATION
  Report Type: 
  Country: None (occurrence: None)
  Receive Date: 20080611
  Receipt Date: 20080604
  Transmission Date: 20081010
  Serious: Yes (Hospitalization)
  Sender: FDA-Public Use
  Company Number: GB-RANBAXY-2008RR-13993

PATIENT

DRUGS (10)
  1. ASPIRIN [Suspect]
  2. AQUEOUS CREAM [Suspect]
  3. ATENOLOL [Suspect]
  4. BENDROFLUMETHIAZIDE [Suspect]
  5. CETOSTEARYL ALCOHOL [Suspect]
  6. CHLORPHENAMINE TABLETS BP 4MG [Suspect]
  7. DIGOXIN [Suspect]
  8. PREDNISOLONE RPG 5MG COMPRIME EFFERVESCENT [Suspect]
  9. URSODIOL [Suspect]
  10. LACTULOSE [Concomitant]
     Dosage: 10 ML, BID
     Route: 048

REACTIONS (1)
  - JAUNDICE [None]
